FAERS Safety Report 18911413 (Version 3)
Quarter: 2021Q2

REPORT INFORMATION
  Report Type: Spontaneous
  Country: US (occurrence: US)
  Receive Date: 20210218
  Receipt Date: 20210401
  Transmission Date: 20210717
  Serious: No
  Sender: FDA-Public Use
  Company Number: US-JNJFOC-20210225055

PATIENT
  Sex: Female
  Weight: 72.64 kg

DRUGS (1)
  1. TREMFYA [Suspect]
     Active Substance: GUSELKUMAB
     Indication: PSORIASIS
     Route: 065

REACTIONS (11)
  - Product dose omission issue [Unknown]
  - Product use issue [Unknown]
  - Inappropriate schedule of product administration [Unknown]
  - Off label use [Unknown]
  - Accidental exposure to product [Unknown]
  - Injection site haemorrhage [Unknown]
  - Product label issue [Unknown]
  - Device issue [Unknown]
  - Injection site pain [Unknown]
  - Visual impairment [Unknown]
  - Psoriasis [Unknown]

NARRATIVE: CASE EVENT DATE: 20210212
